FAERS Safety Report 23041856 (Version 2)
Quarter: 2024Q4

REPORT INFORMATION
  Report Type: Report from Study
  Country: US (occurrence: US)
  Receive Date: 20231007
  Receipt Date: 20241119
  Transmission Date: 20250115
  Serious: No
  Sender: NOVARTIS
  Company Number: US-002147023-NVSC2023US216253

PATIENT
  Age: 74 Year
  Sex: Male
  Weight: 58.51 kg

DRUGS (1)
  1. ENTRESTO [Suspect]
     Active Substance: SACUBITRIL\VALSARTAN
     Indication: Poor peripheral circulation
     Dosage: 1 DOSAGE FORM, BID (24.26 MG)
     Route: 048
     Dates: start: 202110

REACTIONS (4)
  - Chest discomfort [Unknown]
  - Hypoaesthesia [Unknown]
  - Product use in unapproved indication [Unknown]
  - Pain [Unknown]

NARRATIVE: CASE EVENT DATE: 20211001
